FAERS Safety Report 8493830-0 (Version None)
Quarter: 2012Q3

REPORT INFORMATION
  Report Type: 
  Country: None (occurrence: None)
  Receive Date: 20120706
  Receipt Date: 20120702
  Transmission Date: 20120928
  Serious: Yes (Other)
  Sender: FDA-Public Use
  Company Number: FR-GILEAD-2012-0057479

PATIENT
  Age: 60 Year
  Sex: Female

DRUGS (1)
  1. VIREAD [Suspect]
     Indication: HEPATITIS B
     Dosage: 1 DF, UNK

REACTIONS (1)
  - HYPOPHOSPHATAEMIA [None]
